FAERS Safety Report 17209063 (Version 1)
Quarter: 2019Q4

REPORT INFORMATION
  Report Type: Spontaneous
  Country: HK (occurrence: HK)
  Receive Date: 20191227
  Receipt Date: 20191227
  Transmission Date: 20200122
  Serious: Yes (Other)
  Sender: FDA-Public Use
  Company Number: HK-MYLANLABS-2019M1130149

PATIENT
  Age: 57 Year
  Sex: Male

DRUGS (3)
  1. TENOFOVIR DISOPROXIL [Suspect]
     Active Substance: TENOFOVIR DISOPROXIL
     Indication: CHRONIC KIDNEY DISEASE
     Dosage: UNK
     Route: 065
  2. TELBIVUDINE [Suspect]
     Active Substance: TELBIVUDINE
     Indication: CHRONIC KIDNEY DISEASE
     Dosage: UNK
     Route: 065
  3. ADEFOVIR [Suspect]
     Active Substance: ADEFOVIR
     Indication: CHRONIC KIDNEY DISEASE
     Dosage: UNK
     Route: 065

REACTIONS (3)
  - Disease progression [Unknown]
  - Chronic kidney disease [Unknown]
  - Product use in unapproved indication [Unknown]
